FAERS Safety Report 14096328 (Version 1)
Quarter: 2017Q4

REPORT INFORMATION
  Report Type: Spontaneous
  Country: IE (occurrence: IE)
  Receive Date: 20171017
  Receipt Date: 20171017
  Transmission Date: 20180321
  Serious: Yes (Other)
  Sender: FDA-Public Use
  Company Number: IE-ASTRAZENECA-2017SF03696

PATIENT
  Age: 60 Year
  Sex: Male

DRUGS (1)
  1. SYMBICORT [Suspect]
     Active Substance: BUDESONIDE\FORMOTEROL FUMARATE DIHYDRATE
     Indication: ASTHMA
     Dosage: 200/6MICROGRAM, TWO PUFFS, TWICE DAILY
     Route: 055
     Dates: start: 201201

REACTIONS (3)
  - Off label use [Unknown]
  - Product use issue [Unknown]
  - Cerebrovascular accident [Unknown]
